FAERS Safety Report 10891593 (Version 2)
Quarter: 2015Q1

REPORT INFORMATION
  Report Type: Spontaneous
  Country: FR (occurrence: FR)
  Receive Date: 20150306
  Receipt Date: 20150313
  Transmission Date: 20150721
  Serious: Yes (Hospitalization)
  Sender: FDA-Public Use
  Company Number: FR-ASTRAZENECA-2015SE19732

PATIENT
  Age: 18744 Day
  Sex: Female

DRUGS (11)
  1. ACUPAN [Suspect]
     Active Substance: NEFOPAM HYDROCHLORIDE
     Indication: PAIN PROPHYLAXIS
     Route: 048
     Dates: start: 20141121, end: 20141122
  2. DOLIPRANE [Suspect]
     Active Substance: ACETAMINOPHEN
     Indication: PAIN PROPHYLAXIS
     Dosage: 2 TO 4 G,DAILY
     Route: 048
     Dates: start: 20141121, end: 20141122
  3. INEXIUM [Suspect]
     Active Substance: ESOMEPRAZOLE
     Route: 048
     Dates: start: 20141121, end: 20141124
  4. AMIKACINE MYLAN [Suspect]
     Active Substance: AMIKACIN
     Indication: POSTOPERATIVE WOUND INFECTION
     Route: 042
     Dates: start: 20141120, end: 20141123
  5. OXYNORMORO [Suspect]
     Active Substance: OXYCODONE
     Indication: PAIN PROPHYLAXIS
     Route: 048
     Dates: start: 20141120, end: 20141120
  6. DOMPERIDONE ARROX [Suspect]
     Active Substance: DOMPERIDONE
     Indication: PROPHYLAXIS OF NAUSEA AND VOMITING
     Dosage: 10-30 MG,DAILY
     Route: 048
     Dates: start: 20141122, end: 20141128
  7. VANCOMYCINE [Suspect]
     Active Substance: VANCOMYCIN
     Indication: POSTOPERATIVE WOUND INFECTION
     Dosage: 1500 MG, TWO TIMES A DAY (NON AZ PRODUCT)
     Route: 042
     Dates: start: 20141120, end: 20141220
  8. CIPROFLOXACINE MYLAN [Suspect]
     Active Substance: CIPROFLOXACIN
     Indication: POSTOPERATIVE WOUND INFECTION
     Route: 048
     Dates: start: 20141120, end: 20141220
  9. DOMPERIDONE [Suspect]
     Active Substance: DOMPERIDONE
     Indication: NAUSEA
     Dosage: 10-30 MG,DAILY
     Route: 048
     Dates: start: 20141122, end: 20141128
  10. LOVENOX [Suspect]
     Active Substance: ENOXAPARIN SODIUM
     Indication: THROMBOSIS PROPHYLAXIS
     Route: 003
     Dates: start: 20141121
  11. ATARAX [Suspect]
     Active Substance: HYDROXYZINE\HYDROXYZINE HYDROCHLORIDE
     Route: 048
     Dates: start: 20141119, end: 20141119

REACTIONS (1)
  - Drug reaction with eosinophilia and systemic symptoms [Recovering/Resolving]

NARRATIVE: CASE EVENT DATE: 20141220
